FAERS Safety Report 11417458 (Version 1)
Quarter: 2015Q3

REPORT INFORMATION
  Report Type: Spontaneous
  Country: US (occurrence: US)
  Receive Date: 20150825
  Receipt Date: 20150825
  Transmission Date: 20151125
  Serious: No
  Sender: FDA-Public Use
  Company Number: US-TAKEDA-2015TUS010986

PATIENT
  Sex: Male
  Weight: 117.91 kg

DRUGS (3)
  1. UNKNOWN MULTIVITAMIN [Concomitant]
     Dosage: UNK
     Route: 048
  2. COLCRYS [Suspect]
     Active Substance: COLCHICINE
     Indication: PROPHYLAXIS
     Dosage: 0.6 MG, BID
     Route: 048
  3. COLCRYS [Suspect]
     Active Substance: COLCHICINE
     Dosage: 0.6 MG, QD
     Route: 048
     Dates: end: 20150813

REACTIONS (1)
  - Gout [Not Recovered/Not Resolved]
